FAERS Safety Report 15617876 (Version 3)
Quarter: 2019Q1

REPORT INFORMATION
  Report Type: Spontaneous
  Country: US (occurrence: US)
  Receive Date: 20181114
  Receipt Date: 20190311
  Transmission Date: 20190417
  Serious: Yes (Other)
  Sender: FDA-Public Use
  Company Number: US-PFIZER INC-2018463833

PATIENT
  Age: 34 Year
  Sex: Female

DRUGS (1)
  1. XELJANZ XR [Suspect]
     Active Substance: TOFACITINIB CITRATE
     Dosage: 11 MG, UNK
     Dates: start: 201808

REACTIONS (5)
  - Intervertebral disc disorder [Unknown]
  - Nausea [Unknown]
  - Malaise [Unknown]
  - Uterine neoplasm [Unknown]
  - Condition aggravated [Unknown]

NARRATIVE: CASE EVENT DATE: 201901
